FAERS Safety Report 17537873 (Version 1)
Quarter: 2020Q1

REPORT INFORMATION
  Report Type: Report from Study
  Country: RU (occurrence: RU)
  Receive Date: 20200313
  Receipt Date: 20200313
  Transmission Date: 20200409
  Serious: Yes (Other)
  Sender: FDA-Public Use
  Company Number: RU-ROCHE-2564234

PATIENT
  Age: 16 Month
  Sex: Male

DRUGS (1)
  1. ENTRECTINIB [Suspect]
     Active Substance: ENTRECTINIB
     Indication: FIBROSARCOMA
     Route: 065

REACTIONS (2)
  - Bradycardia [Unknown]
  - Constipation [Unknown]
